FAERS Safety Report 14258845 (Version 1)
Quarter: 2017Q4

REPORT INFORMATION
  Report Type: Spontaneous
  Country: NZ (occurrence: NZ)
  Receive Date: 20171206
  Receipt Date: 20171206
  Transmission Date: 20180321
  Serious: Yes (Other)
  Sender: FDA-Public Use
  Company Number: None

PATIENT
  Age: 26 Year
  Sex: Male
  Weight: 75 kg

DRUGS (6)
  1. IRON [Concomitant]
     Active Substance: IRON
  2. LOCOID [Suspect]
     Active Substance: HYDROCORTISONE BUTYRATE
     Indication: ECZEMA
     Route: 061
  3. VITAMIN B12 [Concomitant]
     Active Substance: CYANOCOBALAMIN
  4. ZINC. [Concomitant]
     Active Substance: ZINC
  5. VITAMIN D [Concomitant]
     Active Substance: CHOLECALCIFEROL
  6. MAGNESIUM [Concomitant]
     Active Substance: MAGNESIUM

REACTIONS (3)
  - Eczema [None]
  - Steroid withdrawal syndrome [None]
  - Drug ineffective [None]

NARRATIVE: CASE EVENT DATE: 19970623
